FAERS Safety Report 5378113-X (Version None)
Quarter: 2007Q3

REPORT INFORMATION
  Report Type: 
  Country: None (occurrence: None)
  Receive Date: 20070702
  Receipt Date: 20070702
  Transmission Date: 20080115
  Serious: No
  Sender: FDA-Public Use
  Company Number: None

PATIENT
  Sex: Male

DRUGS (1)
  1. MODAFINIL [Suspect]
     Indication: FATIGUE
     Dosage: 200 MG PO
     Route: 048
     Dates: start: 20070603

REACTIONS (2)
  - HEADACHE [None]
  - SOMNOLENCE [None]
